FAERS Safety Report 15702929 (Version 1)
Quarter: 2018Q4

REPORT INFORMATION
  Report Type: Report from Study
  Country: AU (occurrence: AU)
  Receive Date: 20181210
  Receipt Date: 20181210
  Transmission Date: 20190205
  Serious: No
  Sender: FDA-Public Use
  Company Number: AU-ROCHE-2227249

PATIENT
  Age: 41 Year
  Sex: Female

DRUGS (1)
  1. OCREVUS [Suspect]
     Active Substance: OCRELIZUMAB
     Indication: RELAPSING-REMITTING MULTIPLE SCLEROSIS
     Dosage: INF 2-  20/JUN/2018, INF 3 - 17/DEC/2018?ONGOING: YES
     Route: 041
     Dates: start: 20171206

REACTIONS (4)
  - Fatigue [Not Recovered/Not Resolved]
  - Urinary tract infection [Unknown]
  - Hypoaesthesia [Not Recovered/Not Resolved]
  - Visual impairment [Not Recovered/Not Resolved]

NARRATIVE: CASE EVENT DATE: 201811
